FAERS Safety Report 6130837-2 (Version None)
Quarter: 2009Q1

REPORT INFORMATION
  Report Type: 
  Country: None (occurrence: None)
  Receive Date: 20090325
  Receipt Date: 20090313
  Transmission Date: 20090719
  Serious: Yes (Hospitalization, Other)
  Sender: FDA-Public Use
  Company Number: DE-BAYER-200833213GPV

PATIENT
  Age: 16 Year
  Sex: Female

DRUGS (1)
  1. DROSPIRENONE AND ETHINYL ESTRADIOL [Suspect]
     Indication: DRUG USE FOR UNKNOWN INDICATION
     Dosage: TOTAL DAILY DOSE: 1 DF
     Route: 048

REACTIONS (3)
  - BENIGN INTRACRANIAL HYPERTENSION [None]
  - BRAIN OEDEMA [None]
  - INTRACRANIAL PRESSURE INCREASED [None]
